FAERS Safety Report 9761202 (Version 1)
Quarter: 2013Q4

REPORT INFORMATION
  Report Type: Spontaneous
  Country: DK (occurrence: DK)
  Receive Date: 20131216
  Receipt Date: 20131216
  Transmission Date: 20140711
  Serious: Yes (Other)
  Sender: FDA-Public Use
  Company Number: DK-PFIZER INC-2013358144

PATIENT
  Age: 52 Year
  Sex: Female

DRUGS (2)
  1. MEDROL [Suspect]
     Indication: MULTIPLE SCLEROSIS RELAPSE
     Dosage: UNK
     Route: 048
     Dates: start: 20130815, end: 20130825
  2. METHOTREXAT [Concomitant]
     Indication: SECONDARY PROGRESSIVE MULTIPLE SCLEROSIS

REACTIONS (2)
  - Chorioretinopathy [Recovering/Resolving]
  - Vision blurred [Recovering/Resolving]
